FAERS Safety Report 25636910 (Version 4)
Quarter: 2025Q4

REPORT INFORMATION
  Report Type: Report from Study
  Country: GB (occurrence: GB)
  Receive Date: 20250804
  Receipt Date: 20251218
  Transmission Date: 20260118
  Serious: Yes (Hospitalization, Other)
  Sender: JOHNSON AND JOHNSON
  Company Number: GB-JNJFOC-20250738905

PATIENT
  Age: 73 Year
  Sex: Male

DRUGS (1)
  1. SIMPONI [Suspect]
     Active Substance: GOLIMUMAB
     Indication: Psoriatic arthropathy
     Route: 058

REACTIONS (5)
  - Sepsis [Recovering/Resolving]
  - Infection [Unknown]
  - Hypertension [Recovering/Resolving]
  - Kidney infection [Recovering/Resolving]
  - Limb operation [Recovering/Resolving]

NARRATIVE: CASE EVENT DATE: 20250101
